FAERS Safety Report 5480463-3 (Version None)
Quarter: 2007Q4

REPORT INFORMATION
  Report Type: 
  Country: None (occurrence: None)
  Receive Date: 20071009
  Receipt Date: 20071005
  Transmission Date: 20080405
  Serious: Yes (Life-Threatening, Hospitalization)
  Sender: FDA-Public Use
  Company Number: B0490026A

PATIENT
  Sex: Female

DRUGS (4)
  1. PAXIL [Suspect]
     Dosage: 20MG PER DAY
     Route: 048
     Dates: start: 20070929, end: 20070929
  2. CONSTAN [Suspect]
     Dosage: 8.8MG PER DAY
     Route: 048
     Dates: start: 20070929, end: 20070929
  3. SILECE [Suspect]
     Route: 048
     Dates: start: 20070929, end: 20070929
  4. DOGMATYL [Suspect]
     Dosage: 1100MG PER DAY
     Route: 048
     Dates: start: 20070929, end: 20070929

REACTIONS (4)
  - COMA [None]
  - FEELING ABNORMAL [None]
  - SUICIDE ATTEMPT [None]
  - URINE OUTPUT DECREASED [None]
